FAERS Safety Report 7810324-3 (Version None)
Quarter: 2011Q4

REPORT INFORMATION
  Report Type: 
  Country: None (occurrence: None)
  Receive Date: 20111012
  Receipt Date: 20111003
  Transmission Date: 20120403
  Serious: Yes (Other)
  Sender: FDA-Public Use
  Company Number: US-CELGENEUS-163-21880-11100351

PATIENT
  Sex: Female
  Weight: 95.34 kg

DRUGS (7)
  1. SIMVASTATIN [Concomitant]
     Route: 065
  2. MORPHINE [Concomitant]
     Route: 065
  3. CEPHALEXIN [Concomitant]
     Route: 065
  4. GABAPENTIN [Concomitant]
     Route: 065
  5. FUROSEMIDE [Concomitant]
     Route: 065
  6. DEXAMETHASONE [Concomitant]
     Route: 065
  7. REVLIMID [Suspect]
     Indication: MULTIPLE MYELOMA
     Dosage: 25 MILLIGRAM
     Route: 048
     Dates: start: 20110701

REACTIONS (1)
  - OPEN WOUND [None]
